FAERS Safety Report 7428009-4 (Version None)
Quarter: 2011Q2

REPORT INFORMATION
  Report Type: 
  Country: None (occurrence: None)
  Receive Date: 20110412
  Receipt Date: 20110330
  Transmission Date: 20111010
  Serious: Yes (Hospitalization)
  Sender: FDA-Public Use
  Company Number: 2011001484

PATIENT
  Age: 71 Year

DRUGS (1)
  1. TARCEVA [Suspect]
     Indication: PRODUCT USED FOR UNKNOWN INDICATION
     Dosage: (150 MG,QD),ORAL
     Route: 048
     Dates: start: 20110314, end: 20110321

REACTIONS (2)
  - LABORATORY TEST ABNORMAL [None]
  - DEHYDRATION [None]
